FAERS Safety Report 5934911-2 (Version None)
Quarter: 2008Q4

REPORT INFORMATION
  Report Type: 
  Country: None (occurrence: None)
  Receive Date: 20081027
  Receipt Date: 20081020
  Transmission Date: 20090506
  Serious: Yes (Other)
  Sender: FDA-Public Use
  Company Number: 2008SP018631

PATIENT
  Age: 62 Year
  Sex: Female
  Weight: 75.7507 kg

DRUGS (5)
  1. PEG-INTRON [Suspect]
     Indication: HEPATITIS C
     Dosage: 96 MCG;QW;SC
     Route: 058
     Dates: start: 20080722
  2. REBETOL [Suspect]
     Indication: HEPATITIS C
     Dosage: PO
     Route: 048
     Dates: start: 20080722
  3. ZOLOFT [Concomitant]
  4. ALPRAZOLAM [Concomitant]
  5. CELEXA [Concomitant]

REACTIONS (14)
  - ANAEMIA [None]
  - ANXIETY [None]
  - BLOOD PRESSURE INCREASED [None]
  - DEPRESSION [None]
  - DIZZINESS [None]
  - DRY SKIN [None]
  - FEELING ABNORMAL [None]
  - GLAUCOMA [None]
  - HYPOAESTHESIA [None]
  - IRRITABILITY [None]
  - NASAL DRYNESS [None]
  - NOCTURIA [None]
  - SOMNOLENCE [None]
  - WEIGHT DECREASED [None]
